FAERS Safety Report 8603890 (Version 6)
Quarter: 2013Q2

REPORT INFORMATION
  Report Type: Spontaneous
  Country: US (occurrence: US)
  Receive Date: 20120607
  Receipt Date: 20130619
  Transmission Date: 20140414
  Serious: Yes (Hospitalization, Disabling, Other)
  Sender: FDA-Public Use
  Company Number: US-009507513-1206USA00877

PATIENT
  Sex: Female
  Weight: 70.75 kg

DRUGS (9)
  1. FOSAMAX [Suspect]
     Indication: OSTEOPOROSIS
     Dosage: 70 MG, QW
     Route: 048
     Dates: start: 20010108, end: 200412
  2. FOSAMAX [Suspect]
     Dosage: 70 MG, QW
     Route: 048
     Dates: start: 20060222, end: 20100618
  3. FOSAMAX [Suspect]
     Dosage: UNK
     Route: 048
  4. FOSAMAX [Suspect]
     Route: 048
  5. ALENDRONATE SODIUM [Suspect]
     Dosage: 70 MG, QW
     Dates: start: 20091121
  6. LEVOTHROID [Concomitant]
     Indication: HYPOTHYROIDISM
     Dosage: 75 MICROGRAM, QD
     Dates: start: 1950
  7. BENICAR [Concomitant]
     Dosage: 10-20 MG, QD
  8. ZOCOR [Concomitant]
     Dosage: 40 MG, UNK
     Dates: start: 20060916
  9. SINEMET [Concomitant]
     Dosage: 25 MG, UNK
     Dates: start: 20061010

REACTIONS (50)
  - Femur fracture [Not Recovered/Not Resolved]
  - Stress fracture [Unknown]
  - Open reduction of fracture [Unknown]
  - Internal fixation of fracture [Unknown]
  - Acute myocardial infarction [Unknown]
  - Cardiac failure congestive [Unknown]
  - Fall [Unknown]
  - Leukocytosis [Unknown]
  - Hallucination, visual [Unknown]
  - Supraventricular extrasystoles [Unknown]
  - Feeling abnormal [Unknown]
  - Urinary tract infection [Recovered/Resolved]
  - Pulmonary oedema [Unknown]
  - Transfusion [Recovered/Resolved]
  - Anaemia [Unknown]
  - Aspartate aminotransferase increased [Unknown]
  - Fall [Unknown]
  - Adverse event [Unknown]
  - Vitamin D deficiency [Unknown]
  - Hypertension [Unknown]
  - Restless legs syndrome [Unknown]
  - Hypercholesterolaemia [Unknown]
  - Rib fracture [Recovered/Resolved]
  - Anxiety [Unknown]
  - Coronary artery disease [Unknown]
  - Decreased appetite [Unknown]
  - Bowel movement irregularity [Unknown]
  - Meniscus injury [Unknown]
  - Chondropathy [Unknown]
  - Polymyalgia rheumatica [Unknown]
  - Hyponatraemia [Recovered/Resolved]
  - Palpitations [Unknown]
  - Ventricular tachycardia [Unknown]
  - Post herpetic neuralgia [Recovering/Resolving]
  - Depression [Unknown]
  - Dyspnoea [Unknown]
  - Tachycardia paroxysmal [Unknown]
  - Tooth extraction [Unknown]
  - Contusion [Unknown]
  - Fall [Unknown]
  - Goitre [Unknown]
  - Rib fracture [Unknown]
  - Herpes zoster [Unknown]
  - Bone density decreased [Unknown]
  - Osteoarthritis [Unknown]
  - Limb discomfort [Unknown]
  - Pain in extremity [Unknown]
  - Drug ineffective [Unknown]
  - Nausea [Unknown]
  - Gastric ulcer [Unknown]
